FAERS Safety Report 5259686-4 (Version None)
Quarter: 2007Q1

REPORT INFORMATION
  Report Type: 
  Country: None (occurrence: None)
  Receive Date: 20070307
  Receipt Date: 20070221
  Transmission Date: 20070707
  Serious: Yes (Hospitalization)
  Sender: FDA-Public Use
  Company Number: 07US000870

PATIENT
  Age: 57 Year
  Sex: Male

DRUGS (7)
  1. LITHIUM CARBONATE [Suspect]
     Indication: DEPRESSION
     Dosage: 600 MG QD
  2. PAROXETINE [Suspect]
     Indication: DEPRESSION
  3. QUETIAPINE FUMARATE [Concomitant]
  4. VALPROIC ACID [Concomitant]
  5. PROPRANOLOL [Concomitant]
  6. CANNABINOIDS [Concomitant]
  7. ALCOHOL (ETHANOL) [Concomitant]

REACTIONS (22)
  - AFFECT LABILITY [None]
  - ATROPHY [None]
  - BALANCE DISORDER [None]
  - BLOOD CREATININE INCREASED [None]
  - BLOOD UREA INCREASED [None]
  - BODY TEMPERATURE INCREASED [None]
  - CEREBELLAR SYNDROME [None]
  - DECREASED APPETITE [None]
  - DYSARTHRIA [None]
  - DYSKINESIA [None]
  - DYSPROSODY [None]
  - ENCEPHALOPATHY [None]
  - EYE MOVEMENT DISORDER [None]
  - FAECAL INCONTINENCE [None]
  - FALL [None]
  - GAIT DISTURBANCE [None]
  - LOSS OF CONSCIOUSNESS [None]
  - MULTIPLE DRUG OVERDOSE [None]
  - MUSCLE RIGIDITY [None]
  - TOXICOLOGIC TEST ABNORMAL [None]
  - TREMOR [None]
  - URINARY INCONTINENCE [None]
